FAERS Safety Report 6243899-9 (Version None)
Quarter: 2009Q2

REPORT INFORMATION
  Report Type: 
  Country: None (occurrence: None)
  Receive Date: 20090623
  Receipt Date: 20090615
  Transmission Date: 20091009
  Serious: Yes (Hospitalization, Other)
  Sender: FDA-Public Use
  Company Number: SPV1-2009-01248

PATIENT
  Age: 76 Year
  Sex: Female
  Weight: 76.2 kg

DRUGS (8)
  1. LIALDA [Suspect]
     Indication: COLITIS ULCERATIVE
     Dosage: 4.8 G, DAILY, ORAL
     Route: 047
     Dates: start: 20090531
  2. PREDNISONE TAB [Concomitant]
  3. INSULIN (INSULIN) INJECTION [Concomitant]
  4. AMLODIPINE [Concomitant]
  5. ARIMIDEX (ANASTROZOLE) TABLET [Concomitant]
  6. ASPIRIN [Concomitant]
  7. LOVENOX [Concomitant]
  8. LASIX [Concomitant]

REACTIONS (3)
  - CHEST PAIN [None]
  - GUILLAIN-BARRE SYNDROME [None]
  - RESPIRATORY FAILURE [None]
